FAERS Safety Report 17751555 (Version 4)
Quarter: 2020Q3

REPORT INFORMATION
  Report Type: Spontaneous
  Country: US (occurrence: US)
  Receive Date: 20200506
  Receipt Date: 20200714
  Transmission Date: 20201102
  Serious: Yes (Other)
  Sender: FDA-Public Use
  Company Number: US-PFIZER INC-2020174296

PATIENT
  Age: 66 Year
  Sex: Male
  Weight: 99.11 kg

DRUGS (19)
  1. VALIUM [Concomitant]
     Active Substance: DIAZEPAM
     Indication: ANXIETY
     Dosage: 2 MG, AS NEEDED, (EVERY 6 HOURS AS NEEDED)
     Route: 048
  2. WELLBUTRIN XL [Concomitant]
     Active Substance: BUPROPION HYDROCHLORIDE
     Dosage: 300 MG, 1X/DAY, (EARLY MORNING)
     Route: 048
  3. DEPO?TESTOSTERONE [Suspect]
     Active Substance: TESTOSTERONE CYPIONATE
     Indication: HYPOGONADISM
  4. ALBUTEROL HFA [Concomitant]
     Active Substance: ALBUTEROL SULFATE
     Indication: DYSPNOEA
     Dosage: UNK, AS NEEDED, (TAKE 2 PUFFS BY INHALATION EVERY 6 HOURS AS NEEDED)
     Route: 055
  5. HYZAAR [Concomitant]
     Active Substance: HYDROCHLOROTHIAZIDE\LOSARTAN POTASSIUM
     Dosage: 1 DF, DAILY(1 TABLET BY MOUTH DAILY )
     Route: 048
  6. FLUTICASONE FUROATE [Concomitant]
     Active Substance: FLUTICASONE FUROATE
     Dosage: UNK, (BOTH NOSTRIL ADMINISTER IN EACH NOSTRIL)
     Route: 045
  7. NEURONTIN [Concomitant]
     Active Substance: GABAPENTIN
     Dosage: 300 MG, 4X/DAY
     Route: 048
  8. ZYLOPRIM [Concomitant]
     Active Substance: ALLOPURINOL
     Dosage: 300 MG, DAILY
     Route: 048
  9. LASIX [Concomitant]
     Active Substance: FUROSEMIDE
     Dosage: 20 MG, DAILY
     Route: 048
  10. DEPO?TESTOSTERONE [Suspect]
     Active Substance: TESTOSTERONE CYPIONATE
     Indication: BLOOD TESTOSTERONE DECREASED
     Dosage: 0.4 ML (80 MG), 2X/WEEK
     Route: 030
     Dates: start: 20180212
  11. LEVOTHYROXINE SODIUM. [Concomitant]
     Active Substance: LEVOTHYROXINE SODIUM
     Dosage: 50 UG, 1X/DAY, (EARLY MORNING)
     Route: 048
  12. NORVASC [Concomitant]
     Active Substance: AMLODIPINE BESYLATE
     Dosage: 10 MG, DAILY
     Route: 048
  13. CATAPRES [Concomitant]
     Active Substance: CLONIDINE HYDROCHLORIDE
     Dosage: 0.1 MG, 3X/DAY
     Route: 048
  14. VALIUM [Concomitant]
     Active Substance: DIAZEPAM
     Dosage: 13 MG, DAILY, (5 MG MORNING 3 MG NOON 5 MG AT NIGHT)
  15. ZEBETA [Concomitant]
     Active Substance: BISOPROLOL FUMARATE
     Dosage: 10 MG
  16. K?TAB [Concomitant]
     Active Substance: POTASSIUM CHLORIDE
     Dosage: 20 MEQ, DAILY, (WITH BREAKFAST)
     Route: 048
  17. ALDACTONE [Concomitant]
     Active Substance: SPIRONOLACTONE
     Dosage: 50 MG, DAILY
     Route: 048
  18. DURAGESIC [Concomitant]
     Active Substance: FENTANYL
     Dosage: 100 UG(1 PATCH TO SKIN AS DIRECTED EVERY THIRD DAY)
     Route: 061
  19. ADVAIR HFA [Concomitant]
     Active Substance: FLUTICASONE PROPIONATE\SALMETEROL XINAFOATE
     Dosage: UNK, 2X/DAY, (TAKE 2 PUFFS BY INHALATION EVERY 12 HOURS)
     Route: 055

REACTIONS (3)
  - Weight decreased [Unknown]
  - Product deposit [Unknown]
  - Poor quality product administered [Unknown]

NARRATIVE: CASE EVENT DATE: 20200430
